FAERS Safety Report 24822129 (Version 1)
Quarter: 2025Q1

REPORT INFORMATION
  Report Type: Report from Study
  Country: US (occurrence: US)
  Receive Date: 20250108
  Receipt Date: 20250108
  Transmission Date: 20250409
  Serious: Yes (Death, Other)
  Sender: BAUSCH AND LOMB
  Company Number: US-BAUSCH-BL-2024-005011

PATIENT
  Age: 70 Year
  Sex: Female

DRUGS (1)
  1. XIFAXAN [Suspect]
     Active Substance: RIFAXIMIN
     Indication: Product used for unknown indication
     Route: 065
     Dates: end: 202404

REACTIONS (10)
  - Death [Fatal]
  - Fall [Unknown]
  - Upper limb fracture [Unknown]
  - Memory impairment [Recovering/Resolving]
  - Ammonia abnormal [Unknown]
  - Liver disorder [Unknown]
  - Renal disorder [Unknown]
  - Balance disorder [Unknown]
  - Therapy interrupted [Unknown]
  - Inability to afford medication [Unknown]

NARRATIVE: CASE EVENT DATE: 20240401
